FAERS Safety Report 12700265 (Version 1)
Quarter: 2016Q3

REPORT INFORMATION
  Report Type: Spontaneous
  Country: US (occurrence: US)
  Receive Date: 20160830
  Receipt Date: 20160830
  Transmission Date: 20161109
  Serious: No
  Sender: FDA-Public Use
  Company Number: US-SA-2015SA125505

PATIENT
  Age: 65 Year
  Sex: Female
  Weight: 58.96 kg

DRUGS (14)
  1. LIPITOR [Concomitant]
     Active Substance: ATORVASTATIN CALCIUM
     Dosage: 1 TABLET DAILY
  2. VITAMIN D [Concomitant]
     Active Substance: CHOLECALCIFEROL
     Dosage: 1 TABLET DAILY
  3. TIKOSYN [Concomitant]
     Active Substance: DOFETILIDE
     Dosage: 1 TABLET TWICE A DAY
  4. HEPARIN [Concomitant]
     Active Substance: HEPARIN SODIUM
     Dosage: 100UN/ML
     Route: 042
  5. NORMAL SALINE [Concomitant]
     Active Substance: SODIUM CHLORIDE
     Route: 042
  6. LASIX [Concomitant]
     Active Substance: FUROSEMIDE
     Dosage: 1 TABLET
  7. WATER FOR INJECTION [Concomitant]
     Active Substance: WATER
     Route: 042
  8. EPIPEN [Concomitant]
     Active Substance: EPINEPHRINE
     Indication: ANAPHYLACTIC REACTION
  9. METOPROLOL. [Concomitant]
     Active Substance: METOPROLOL
     Dosage: 1 TABLET
  10. CETIRIZINE [Concomitant]
     Active Substance: CETIRIZINE HYDROCHLORIDE
     Dosage: 1 TABLET
  11. PRILOSEC [Concomitant]
     Active Substance: OMEPRAZOLE MAGNESIUM
     Dosage: 1 CAPSULE
  12. FABRAZYME [Suspect]
     Active Substance: AGALSIDASE BETA
     Indication: LIPIDOSIS
     Route: 041
     Dates: start: 20140403
  13. LEVOFLOXACIN. [Concomitant]
     Active Substance: LEVOFLOXACIN
     Dosage: 1 TABLET
  14. WARFARIN [Concomitant]
     Active Substance: WARFARIN
     Dosage: 1 TABLET MWFSS

REACTIONS (1)
  - Fall [Unknown]

NARRATIVE: CASE EVENT DATE: 201508
